FAERS Safety Report 7004238-9 (Version None)
Quarter: 2010Q3

REPORT INFORMATION
  Report Type: 
  Country: None (occurrence: None)
  Receive Date: 20100920
  Receipt Date: 20100209
  Transmission Date: 20110219
  Serious: No
  Sender: FDA-Public Use
  Company Number: US-WYE-H13589410

PATIENT
  Age: 51 Year
  Sex: Female

DRUGS (5)
  1. PRISTIQ [Suspect]
     Indication: DEPRESSION
     Route: 048
     Dates: start: 20100202
  2. PREMARIN [Concomitant]
  3. XANAX [Concomitant]
  4. TOPAMAX [Interacting]
     Dosage: UNKNOWN DAILY DOSE
     Dates: end: 20100201
  5. TOPAMAX [Interacting]
     Dosage: TAKING UNKNOWN DOSE, EVERY OTHER DAY
     Dates: start: 20100201

REACTIONS (6)
  - ANXIETY [None]
  - DRUG INTERACTION [None]
  - FATIGUE [None]
  - FEELING ABNORMAL [None]
  - INSOMNIA [None]
  - VISION BLURRED [None]
